FAERS Safety Report 18346472 (Version 1)
Quarter: 2020Q4

REPORT INFORMATION
  Report Type: Report from Study
  Country: None (occurrence: IT)
  Receive Date: 20201006
  Receipt Date: 20201006
  Transmission Date: 20210114
  Serious: Yes (Hospitalization)
  Sender: FDA-Public Use
  Company Number: IT-ABBVIE-20K-083-3591324-00

PATIENT
  Age: 45 Year
  Sex: Female

DRUGS (8)
  1. LAMICTAL [Suspect]
     Active Substance: LAMOTRIGINE
     Indication: BIPOLAR II DISORDER
     Route: 048
     Dates: end: 2020
  2. OLANZAPINE. [Suspect]
     Active Substance: OLANZAPINE
     Indication: PSYCHOTIC DISORDER
     Route: 048
     Dates: end: 2020
  3. VATRAN [Suspect]
     Active Substance: DIAZEPAM
     Indication: ANXIETY
     Route: 048
     Dates: end: 2020
  4. DEPAKINE [Suspect]
     Active Substance: VALPROATE SODIUM
     Indication: BIPOLAR II DISORDER
     Route: 048
     Dates: end: 2020
  5. CARBOLITHIUM [Suspect]
     Active Substance: LITHIUM CARBONATE
     Indication: BIPOLAR II DISORDER
     Route: 048
     Dates: end: 2020
  6. GABAPENTIN. [Suspect]
     Active Substance: GABAPENTIN
     Indication: PERSONALITY DISORDER
     Route: 048
     Dates: end: 2020
  7. NAEMIS [Suspect]
     Active Substance: ESTRADIOL\NOMEGESTROL ACETATE
     Indication: ORAL CONTRACEPTION
     Route: 048
     Dates: end: 2020
  8. CITALOPRAM [Suspect]
     Active Substance: CITALOPRAM HYDROBROMIDE
     Indication: DEPRESSION
     Route: 048
     Dates: end: 2020

REACTIONS (4)
  - Drug abuse [Recovering/Resolving]
  - Hypokinesia [Recovering/Resolving]
  - Speech disorder [Recovering/Resolving]
  - Bradyphrenia [Recovering/Resolving]

NARRATIVE: CASE EVENT DATE: 20200708
